FAERS Safety Report 12600581 (Version 1)
Quarter: 2016Q3

REPORT INFORMATION
  Report Type: Report from Study
  Country: CM (occurrence: CM)
  Receive Date: 20160727
  Receipt Date: 20160727
  Transmission Date: 20161109
  Serious: Yes (Death, Hospitalization, Other)
  Sender: FDA-Public Use
  Company Number: CM-009507513-1607CMR011582

PATIENT

DRUGS (3)
  1. IVERMECTIN. [Suspect]
     Active Substance: IVERMECTIN
     Indication: ONCHOCERCIASIS
     Dosage: UNK
     Route: 048
  2. IVERMECTIN. [Suspect]
     Active Substance: IVERMECTIN
     Indication: FILARIASIS LYMPHATIC
  3. ALBENDAZOLE [Suspect]
     Active Substance: ALBENDAZOLE

REACTIONS (1)
  - Meningitis [Fatal]
